FAERS Safety Report 11777977 (Version 1)
Quarter: 2015Q4

REPORT INFORMATION
  Report Type: Spontaneous
  Country: FR (occurrence: FR)
  Receive Date: 20151125
  Receipt Date: 20151125
  Transmission Date: 20160304
  Serious: Yes (Hospitalization)
  Sender: FDA-Public Use
  Company Number: FR-ASTRAZENECA-2015SF12991

PATIENT
  Age: 27875 Day
  Sex: Male

DRUGS (6)
  1. SINTROM [Concomitant]
     Active Substance: ACENOCOUMAROL
     Dosage: 1 MG OR 2 MG EACH OTHER NIGHT
     Route: 048
  2. ESOMEPRAZOLE [Suspect]
     Active Substance: ESOMEPRAZOLE
     Indication: GASTROINTESTINAL DISORDER
     Route: 048
     Dates: end: 20150705
  3. HYTACAND [Suspect]
     Active Substance: CANDESARTAN CILEXETIL\HYDROCHLOROTHIAZIDE
     Indication: HYPERTENSION
     Dosage: 16 MG + 12.5 MG AT MORNING
     Route: 048
     Dates: start: 2013, end: 20150715
  4. ATORVASTATIN [Concomitant]
     Active Substance: ATORVASTATIN
     Route: 048
  5. BETASERC [Concomitant]
     Active Substance: BETAHISTINE
     Route: 048
     Dates: end: 20150705
  6. AMIODARONE [Concomitant]
     Active Substance: AMIODARONE
     Route: 048

REACTIONS (5)
  - Vomiting [Unknown]
  - Hyponatraemia [Recovered/Resolved]
  - Hiccups [Unknown]
  - Vertigo [Recovered/Resolved]
  - Bronchitis [Unknown]

NARRATIVE: CASE EVENT DATE: 20150706
